FAERS Safety Report 11127128 (Version 1)
Quarter: 2015Q2

REPORT INFORMATION
  Report Type: Report from Study
  Country: KR (occurrence: KR)
  Receive Date: 20150521
  Receipt Date: 20150521
  Transmission Date: 20150821
  Serious: Yes (Hospitalization)
  Sender: FDA-Public Use
  Company Number: KR-AMGEN-KORCT2015049053

PATIENT
  Age: 55 Year
  Sex: Female
  Weight: 56 kg

DRUGS (27)
  1. DOCETAXEL. [Concomitant]
     Active Substance: DOCETAXEL
     Dosage: 122 MG, UNK
     Route: 042
     Dates: start: 20150502, end: 20150502
  2. CYCLOPHOSPHAMIDE. [Concomitant]
     Active Substance: CYCLOPHOSPHAMIDE
     Dosage: 770 MG, UNK
     Route: 042
     Dates: start: 20150411, end: 20150411
  3. SMOFKABIVEN PERIPHERAL [Concomitant]
     Dosage: 1BAG
     Route: 042
     Dates: start: 20150418, end: 20150418
  4. PEGFILGRASTIM [Suspect]
     Active Substance: PEGFILGRASTIM
     Dosage: 6 MG, 1X/3WEEKS
     Route: 058
     Dates: start: 20150503
  5. METOCLOPRAMIDE HCL [Concomitant]
     Active Substance: METOCLOPRAMIDE HYDROCHLORIDE
     Dosage: 30 MG, UNK
     Route: 048
     Dates: start: 20150410, end: 20150412
  6. DEXAMETHASONE. [Concomitant]
     Active Substance: DEXAMETHASONE
     Dosage: 1.5 MG, UNK
     Route: 048
     Dates: start: 20150410, end: 20150410
  7. MEGASTROL [Concomitant]
     Dosage: 20 ML, UNK
     Route: 048
     Dates: start: 20150417, end: 20150419
  8. TRESTAN                            /00056201/ [Concomitant]
     Dosage: 50 MG, UNK
     Route: 048
     Dates: start: 20150417, end: 20150419
  9. DOXORUBICIN [Concomitant]
     Active Substance: DOXORUBICIN
     Dosage: 77 MG, UNK
     Route: 042
     Dates: start: 20150502, end: 20150502
  10. CEFOBACTAM [Concomitant]
     Dosage: 2 G, UNK
     Route: 042
     Dates: start: 20150417, end: 20150418
  11. PEGFILGRASTIM [Suspect]
     Active Substance: PEGFILGRASTIM
     Indication: FEBRILE NEUTROPENIA
     Dosage: 6 MG, 1X/3WEEKS
     Route: 058
     Dates: start: 20150412
  12. DEXAMETHASONE. [Concomitant]
     Active Substance: DEXAMETHASONE
     Dosage: 10 MG, UNK
     Route: 042
     Dates: start: 20150411, end: 20150411
  13. SMOFKABIVEN PERIPHERAL [Concomitant]
     Dosage: 1BAG
     Route: 042
     Dates: start: 20150412, end: 20150412
  14. DOXORUBICIN [Concomitant]
     Active Substance: DOXORUBICIN
     Dosage: 77 MG, UNK
     Route: 042
     Dates: start: 20150411, end: 20150411
  15. PALONOSETRON [Concomitant]
     Active Substance: PALONOSETRON
     Dosage: 0.25 MG, UNK
     Route: 042
     Dates: start: 20150411, end: 20150411
  16. APREPITANT. [Concomitant]
     Active Substance: APREPITANT
     Dosage: 125 MG, UNK
     Route: 048
     Dates: start: 20150411, end: 20150411
  17. CYCLOPHOSPHAMIDE. [Concomitant]
     Active Substance: CYCLOPHOSPHAMIDE
     Dosage: 770 MG, UNK
     Route: 042
     Dates: start: 20150502, end: 20150502
  18. RANITIDINE [Concomitant]
     Active Substance: RANITIDINE\RANITIDINE HYDROCHLORIDE
     Dosage: 300 MG, UNK
     Route: 048
     Dates: start: 20150410, end: 20150412
  19. DEXRAZOXANE. [Concomitant]
     Active Substance: DEXRAZOXANE
     Dosage: 770 MG, UNK
     Route: 042
     Dates: start: 20150411, end: 20150411
  20. TOBRAMYCIN. [Concomitant]
     Active Substance: TOBRAMYCIN
     Dosage: 200 MG, UNK
     Route: 042
     Dates: start: 20150417, end: 20150418
  21. VITAMEDIN                          /00176001/ [Concomitant]
     Dosage: 50 MG, UNK
     Route: 048
     Dates: start: 20150417, end: 20150419
  22. DOCETAXEL. [Concomitant]
     Active Substance: DOCETAXEL
     Dosage: 115 MG, UNK
     Route: 042
     Dates: start: 20150411, end: 20150411
  23. DEXAMETHASONE. [Concomitant]
     Active Substance: DEXAMETHASONE
     Dosage: 3 MG, UNK
     Route: 048
     Dates: start: 20150411, end: 20150412
  24. G-CSF [Concomitant]
     Active Substance: GRANULOCYTE COLONY-STIMULATING FACTOR NOS
     Dosage: 150 MUG, UNK
     Route: 058
     Dates: start: 20150417, end: 20150417
  25. VYTORIN [Concomitant]
     Active Substance: EZETIMIBE\SIMVASTATIN
     Dosage: 10 MG, UNK
     Route: 048
     Dates: start: 20150410
  26. DIMENHYDRINATE. [Concomitant]
     Active Substance: DIMENHYDRINATE
     Dosage: 150 MG, UNK
     Route: 048
     Dates: start: 20150410, end: 20150412
  27. APREPITANT. [Concomitant]
     Active Substance: APREPITANT
     Dosage: 80 MG, UNK
     Route: 048
     Dates: start: 20150412, end: 20150413

REACTIONS (1)
  - Neutropenia [Recovered/Resolved]

NARRATIVE: CASE EVENT DATE: 20150308
